FAERS Safety Report 4989639-2 (Version None)
Quarter: 2006Q2

REPORT INFORMATION
  Report Type: 
  Country: None (occurrence: None)
  Receive Date: 20060425
  Receipt Date: 20060413
  Transmission Date: 20061013
  Serious: Yes (Disabling)
  Sender: FDA-Public Use
  Company Number: 236530K05USA

PATIENT
  Age: 41 Year
  Sex: Female

DRUGS (3)
  1. REBIF [Suspect]
     Indication: MULTIPLE SCLEROSIS
     Dosage: 44 MCG, 3 IN 1 WEEKS, SUBCUTANEOUS
     Route: 058
     Dates: start: 20040412, end: 20060409
  2. LIBRAX [Concomitant]
  3. KLONOPIN [Concomitant]

REACTIONS (9)
  - BENIGN NEOPLASM [None]
  - BREAST MICROCALCIFICATION [None]
  - CHROMATURIA [None]
  - HEPATIC CYST [None]
  - HYPOACUSIS [None]
  - LIPOMA [None]
  - THYROID NEOPLASM [None]
  - URINE ODOUR ABNORMAL [None]
  - WHITE BLOOD CELL COUNT DECREASED [None]
